FAERS Safety Report 25113077 (Version 1)
Quarter: 2025Q1

REPORT INFORMATION
  Report Type: Spontaneous
  Country: US (occurrence: US)
  Receive Date: 20250324
  Receipt Date: 20250324
  Transmission Date: 20250408
  Serious: Yes (Other)
  Sender: SANDOZ
  Company Number: US-SANDOZ-SDZ2025US016910

PATIENT
  Sex: Female

DRUGS (16)
  1. CLARITHROMYCIN [Suspect]
     Active Substance: CLARITHROMYCIN
     Indication: Mycobacterium avium complex infection
     Dosage: UNK, TIW
     Route: 065
     Dates: start: 202008, end: 202202
  2. ETHAMBUTOL [Suspect]
     Active Substance: ETHAMBUTOL HYDROCHLORIDE
     Indication: Mycobacterium avium complex infection
     Dosage: UNK, TIW
     Route: 065
     Dates: start: 202008, end: 202202
  3. RIFAMPIN [Suspect]
     Active Substance: RIFAMPIN
     Indication: Mycobacterium avium complex infection
     Dosage: UNK, TIW
     Route: 065
     Dates: start: 202008, end: 202202
  4. ALBUTEROL [Concomitant]
     Active Substance: ALBUTEROL
     Indication: Cough
     Dosage: INHALE 3 ML (2.5 MG TOTAL) BY NEBULIZATION 4 (FOUR) TIMES A DAY AS NEEDED (COUGH). - NEBULIZATION
     Route: 055
     Dates: start: 20240610
  5. ALBUTEROL [Concomitant]
     Active Substance: ALBUTEROL
     Indication: Product used for unknown indication
     Route: 065
     Dates: start: 20240730
  6. ARIKAYCE [Concomitant]
     Active Substance: AMIKACIN
     Indication: Product used for unknown indication
     Dosage: 590 MG, QD (AMIKACIN LIPOSOMAL-NEB.ACCESSR (ARIKAYCE) 590 MG/8.4 ML)
     Route: 055
     Dates: start: 20250116
  7. BACTRIM DS [Concomitant]
     Active Substance: SULFAMETHOXAZOLE\TRIMETHOPRIM
     Indication: Bronchiectasis
     Route: 048
     Dates: start: 20250116
  8. SODIUM CHLORIDE [Concomitant]
     Active Substance: SODIUM CHLORIDE
     Indication: Cough
     Dosage: INHALE 1 VIAL BY NEBULIZATION 2 (TWO) TIMES A DAY. - NEBULIZATION
     Route: 065
     Dates: start: 20240605
  9. SODIUM CHLORIDE [Concomitant]
     Active Substance: SODIUM CHLORIDE
     Indication: Bronchiectasis
     Dosage: INHALE 4 ML BY NEBULIZATION 2 (TWO) TIMES A DAY. USE ALBULEROL BEFORE THIS TREATMENT. USE AEROBIKA F
     Route: 055
     Dates: start: 20240621
  10. MOTRIN [Concomitant]
     Active Substance: IBUPROFEN
     Dosage: TAKE 1 TABLET (600 MG TOTAL) BY MOUTH EVERY 6 (SIX) HOURS AS NEEDED FOR PAIN.
     Route: 048
     Dates: start: 20240719
  11. MOTRIN [Concomitant]
     Active Substance: IBUPROFEN
     Indication: Pain
     Dosage: TAKE 1 TABLET (800 MG TOTAL) BY MOUTH 3 (THREE) TIMES A DAY AS NEEDED FOR PAIN (PAIN).
     Route: 048
     Dates: start: 20240320
  12. MYAMBUTOL [Concomitant]
     Active Substance: ETHAMBUTOL HYDROCHLORIDE
     Indication: Product used for unknown indication
     Route: 048
     Dates: start: 20250116
  13. PHENERGAN W/ CODEINE [Concomitant]
     Active Substance: CODEINE PHOSPHATE\PROMETHAZINE HYDROCHLORIDE
     Indication: Cough
     Route: 048
     Dates: start: 20240522
  14. ROBAXIN [Concomitant]
     Active Substance: METHOCARBAMOL
     Indication: Muscle spasms
     Dosage: TAKE 1 TABLET (500 MG TOTAL) BY MOUTH 4 (FOUR) TIMES A DAY AS NEEDED FOR MUSCLE SPASMS.
     Route: 048
     Dates: start: 20240320
  15. TYLENOL [Concomitant]
     Active Substance: ACETAMINOPHEN
     Indication: Pain
     Dosage: TAKE 1 TABLET (500 MG TOTAL) BY MOUTH EVERY 6 (SIX) HOURS AS NEEDED FOR PAIN. - ORAL
     Route: 048
     Dates: start: 20240719
  16. ZITHROMAX [Concomitant]
     Active Substance: AZITHROMYCIN DIHYDRATE
     Indication: Product used for unknown indication
     Route: 048

REACTIONS (1)
  - Mycobacterium avium complex infection [Unknown]

NARRATIVE: CASE EVENT DATE: 20220501
